FAERS Safety Report 25217795 (Version 2)
Quarter: 2025Q3

REPORT INFORMATION
  Report Type: Report from Study
  Country: US (occurrence: US)
  Receive Date: 20250420
  Receipt Date: 20250918
  Transmission Date: 20251021
  Serious: Yes (Hospitalization)
  Sender: ABBVIE
  Company Number: US-ABBVIE-6235401

PATIENT
  Sex: Female

DRUGS (3)
  1. IMBRUVICA [Suspect]
     Active Substance: IBRUTINIB
     Indication: Chronic lymphocytic leukaemia
     Dosage: MISSED DOSES
     Route: 048
     Dates: start: 202210
  2. IMBRUVICA [Suspect]
     Active Substance: IBRUTINIB
     Indication: Chronic lymphocytic leukaemia
     Route: 048
     Dates: start: 20201109
  3. SODIUM LAURYL SULFATE [Suspect]
     Active Substance: SODIUM LAURYL SULFATE
     Indication: Product used for unknown indication
     Route: 065

REACTIONS (11)
  - Medical procedure [Unknown]
  - Lip pain [Unknown]
  - Lip swelling [Unknown]
  - Left atrial appendage closure implant [Unknown]
  - Dizziness [Unknown]
  - Oropharyngeal pain [Unknown]
  - Gait inability [Unknown]
  - Arthralgia [Unknown]
  - Fatigue [Unknown]
  - Poor quality sleep [Unknown]
  - General physical health deterioration [Unknown]
